FAERS Safety Report 4469675-5 (Version None)
Quarter: 2004Q4

REPORT INFORMATION
  Report Type: 
  Country: None (occurrence: None)
  Receive Date: 20041008
  Receipt Date: 20040930
  Transmission Date: 20050328
  Serious: Yes (Other)
  Sender: FDA-Public Use
  Company Number: NZ-MERCK-0410NZL00002

PATIENT
  Sex: Female

DRUGS (7)
  1. CELIPROLOL HYDROCHLORIDE [Concomitant]
     Route: 048
  2. COLOXYL [Concomitant]
     Route: 065
  3. FELODIPINE [Concomitant]
     Route: 048
  4. PRINIVIL [Concomitant]
     Route: 048
  5. NITROLINGUAL [Concomitant]
     Route: 065
  6. LOSEC (OMEPRAZOLE) [Concomitant]
     Route: 048
  7. VIOXX [Suspect]
     Indication: ARTHRITIS
     Route: 048
     Dates: start: 20020101

REACTIONS (4)
  - CEREBROVASCULAR ACCIDENT [None]
  - CHAPPED LIPS [None]
  - GLOSSODYNIA [None]
  - ORAL PAIN [None]
